FAERS Safety Report 17242861 (Version 1)
Quarter: 2020Q1

REPORT INFORMATION
  Report Type: Spontaneous
  Country: FR (occurrence: FR)
  Receive Date: 20200107
  Receipt Date: 20200107
  Transmission Date: 20200409
  Serious: Yes (Other)
  Sender: FDA-Public Use
  Company Number: FR-MYLANLABS-2020M1001231

PATIENT
  Age: 44 Year
  Sex: Male

DRUGS (4)
  1. DIPRIVAN [Suspect]
     Active Substance: PROPOFOL
     Indication: GENERAL ANAESTHESIA
     Dosage: 300 MILLIGRAM, TOTAL
     Route: 042
     Dates: start: 20180221, end: 20180221
  2. MIDAZOLAM MYLAN [Suspect]
     Active Substance: MIDAZOLAM HYDROCHLORIDE
     Indication: GENERAL ANAESTHESIA
     Dosage: 2 MILLIGRAM, TOTAL
     Route: 042
     Dates: start: 20180221, end: 20180221
  3. ESMERON [Suspect]
     Active Substance: ROCURONIUM BROMIDE
     Indication: GENERAL ANAESTHESIA
     Dosage: 50 MILLIGRAM, TOTAL
     Route: 042
     Dates: start: 20180221, end: 20180221
  4. SUFENTANIL RENAUDIN [Suspect]
     Active Substance: SUFENTANIL CITRATE
     Indication: GENERAL ANAESTHESIA
     Dosage: 20 MICROGRAM, TOTAL
     Route: 042
     Dates: start: 20180221, end: 20180221

REACTIONS (1)
  - Anaphylactic shock [Recovered/Resolved]

NARRATIVE: CASE EVENT DATE: 20180221
